FAERS Safety Report 15968384 (Version 1)
Quarter: 2019Q1

REPORT INFORMATION
  Report Type: Spontaneous
  Country: US (occurrence: US)
  Receive Date: 20190215
  Receipt Date: 20190215
  Transmission Date: 20190418
  Serious: Yes (Other)
  Sender: FDA-Public Use
  Company Number: US-ASTRAZENECA-2019SE24027

PATIENT

DRUGS (19)
  1. HYDROXYCHLOROQUINE [Concomitant]
     Active Substance: HYDROXYCHLOROQUINE
  2. MAG-OX [Concomitant]
     Active Substance: MAGNESIUM OXIDE
  3. OMEPRAZOLE. [Suspect]
     Active Substance: OMEPRAZOLE
     Route: 048
  4. METHOTREXATE. [Suspect]
     Active Substance: METHOTREXATE
     Route: 065
  5. ENBREL [Concomitant]
     Active Substance: ETANERCEPT
  6. ANDROGEL [Concomitant]
     Active Substance: TESTOSTERONE
  7. AMLODIPINE [Concomitant]
     Active Substance: AMLODIPINE BESYLATE
  8. HCTZ [Suspect]
     Active Substance: HYDROCHLOROTHIAZIDE
     Route: 065
  9. MULTIVITAMINS [Concomitant]
     Active Substance: VITAMINS
  10. LISINOPRIL. [Suspect]
     Active Substance: LISINOPRIL
     Route: 048
  11. ARAVA [Concomitant]
     Active Substance: LEFLUNOMIDE
  12. IBUPROFEN. [Concomitant]
     Active Substance: IBUPROFEN
  13. PREDNISONE. [Concomitant]
     Active Substance: PREDNISONE
  14. METOPROLOL. [Suspect]
     Active Substance: METOPROLOL
     Route: 065
  15. DESLORATADINE. [Concomitant]
     Active Substance: DESLORATADINE
  16. METOPROLOL TARTRATE. [Concomitant]
     Active Substance: METOPROLOL TARTRATE
  17. FLUTICASONE PROPIONATE. [Concomitant]
     Active Substance: FLUTICASONE PROPIONATE
  18. HUMIRA [Concomitant]
     Active Substance: ADALIMUMAB
  19. XELJANZ [Concomitant]
     Active Substance: TOFACITINIB CITRATE

REACTIONS (3)
  - Blood creatinine increased [Unknown]
  - Cerebrovascular accident [Unknown]
  - Rash [Unknown]
